FAERS Safety Report 6975662-5 (Version None)
Quarter: 2010Q3

REPORT INFORMATION
  Report Type: 
  Country: None (occurrence: None)
  Receive Date: 20100910
  Receipt Date: 20100831
  Transmission Date: 20110219
  Serious: Yes (Death)
  Sender: FDA-Public Use
  Company Number: FR-RB-002531-10

PATIENT
  Sex: Male

DRUGS (2)
  1. SUBUTEX [Suspect]
     Indication: DRUG DEPENDENCE
     Route: 060
     Dates: start: 20000101
  2. SUBUTEX [Suspect]
     Dosage: 8 MG DAILY DOSE
     Route: 065

REACTIONS (2)
  - DEATH [None]
  - GYNAECOMASTIA [None]
